FAERS Safety Report 20959100 (Version 1)
Quarter: 2022Q2

REPORT INFORMATION
  Report Type: Spontaneous
  Country: US (occurrence: US)
  Receive Date: 20220614
  Receipt Date: 20220614
  Transmission Date: 20220721
  Serious: No
  Sender: FDA-Public Use
  Company Number: US-MYLANLABS-2022M1037332

PATIENT
  Age: 20 Year
  Sex: Female

DRUGS (1)
  1. XULANE [Suspect]
     Active Substance: ETHINYL ESTRADIOL\NORELGESTROMIN
     Indication: Product used for unknown indication
     Dosage: 150/35 MICROGRAM, QD

REACTIONS (4)
  - Application site pruritus [Unknown]
  - Application site irritation [Unknown]
  - Application site erythema [Unknown]
  - Rash [Unknown]

NARRATIVE: CASE EVENT DATE: 20220516
